FAERS Safety Report 9268831 (Version 1)
Quarter: 2013Q2

REPORT INFORMATION
  Report Type: Spontaneous
  Country: CY (occurrence: CY)
  Receive Date: 20130502
  Receipt Date: 20130502
  Transmission Date: 20140414
  Serious: Yes (Other)
  Sender: FDA-Public Use
  Company Number: CY-009507513-1304CYP016153

PATIENT
  Age: 42 Year
  Sex: Male

DRUGS (1)
  1. JANUMET [Suspect]
     Indication: DIABETES MELLITUS
     Dosage: 1 TABLET, BID, 50/850
     Route: 048
     Dates: start: 20130404, end: 20130420

REACTIONS (2)
  - Loss of consciousness [Unknown]
  - Hepatic enzyme increased [Unknown]
